FAERS Safety Report 22162697 (Version 1)
Quarter: 2023Q1

REPORT INFORMATION
  Report Type: Spontaneous
  Country: CN (occurrence: CN)
  Receive Date: 20230331
  Receipt Date: 20230331
  Transmission Date: 20230417
  Serious: Yes (Other)
  Sender: FDA-Public Use
  Company Number: CN-009507513-2303CHN009248

PATIENT
  Age: 42 Year
  Sex: Male
  Weight: 60 kg

DRUGS (5)
  1. CILASTATIN SODIUM\IMIPENEM [Suspect]
     Active Substance: CILASTATIN SODIUM\IMIPENEM
     Indication: Pneumonia
     Dosage: 0.5G, Q12H
     Route: 041
     Dates: start: 20230310, end: 202303
  2. CILASTATIN SODIUM\IMIPENEM [Suspect]
     Active Substance: CILASTATIN SODIUM\IMIPENEM
     Dosage: 1G, Q12H
     Route: 041
     Dates: start: 20230314, end: 20230315
  3. TEICOPLANIN [Concomitant]
     Active Substance: TEICOPLANIN
     Indication: Pneumonia
     Dosage: 0.4G, Q12H
     Route: 041
     Dates: start: 20230310, end: 202303
  4. TEICOPLANIN [Concomitant]
     Active Substance: TEICOPLANIN
     Dosage: 0.2G, QD
     Route: 041
     Dates: start: 20230314, end: 20230322
  5. SODIUM CHLORIDE [Concomitant]
     Active Substance: SODIUM CHLORIDE
     Dosage: 100ML, Q12H
     Route: 041
     Dates: start: 20230314

REACTIONS (3)
  - Delirium [Recovering/Resolving]
  - Pruritus allergic [Recovering/Resolving]
  - Inappropriate schedule of product administration [Unknown]

NARRATIVE: CASE EVENT DATE: 20230310
